FAERS Safety Report 6746580-2 (Version None)
Quarter: 2010Q2

REPORT INFORMATION
  Report Type: 
  Country: None (occurrence: None)
  Receive Date: 20100528
  Receipt Date: 20080918
  Transmission Date: 20101027
  Serious: No
  Sender: FDA-Public Use
  Company Number: US-ASTRAZENECA-2009SE11478

PATIENT
  Sex: Female

DRUGS (12)
  1. PRILOSEC OTC [Suspect]
     Indication: DYSPEPSIA
     Dosage: 1 TABLET, 1 /DAY FOR 730 DAYS
     Route: 048
     Dates: start: 20060918, end: 20080917
  2. PRILOSEC OTC [Suspect]
     Indication: GASTROOESOPHAGEAL REFLUX DISEASE
     Dosage: 1 TABLET, 1 /DAY FOR 730 DAYS
     Route: 048
     Dates: start: 20060918, end: 20080917
  3. PRILOSEC OTC [Suspect]
     Indication: NAUSEA
     Dosage: 1 TABLET, 1 /DAY FOR 730 DAYS
     Route: 048
     Dates: start: 20060918, end: 20080917
  4. PRILOSEC OTC [Suspect]
  5. PRILOSEC OTC [Suspect]
  6. PRILOSEC OTC [Suspect]
  7. FLOVENT [Suspect]
     Indication: ASTHMA
     Dosage: UNKNOWN
  8. CALCIUM +VIT D [Concomitant]
     Indication: OSTEOPENIA
     Route: 048
  9. VITAMIN TAB [Concomitant]
     Dosage: UNKNOWN
  10. ALBUTEROL [Concomitant]
     Dosage: UNKNOWN
  11. LOPRESSOR [Concomitant]
     Indication: TACHYCARDIA
  12. FISH OIL [Concomitant]
     Dosage: UNKNOWN

REACTIONS (5)
  - ASTHMA [None]
  - BRONCHOSPASM [None]
  - CHEST DISCOMFORT [None]
  - CONDITION AGGRAVATED [None]
  - DYSPNOEA [None]
